FAERS Safety Report 7501950-X (Version None)
Quarter: 2011Q2

REPORT INFORMATION
  Report Type: 
  Country: None (occurrence: None)
  Receive Date: 20110525
  Receipt Date: 20110519
  Transmission Date: 20111010
  Serious: No
  Sender: FDA-Public Use
  Company Number: US-PFIZER INC-2011109017

PATIENT
  Sex: Male

DRUGS (2)
  1. LIPITOR [Suspect]
     Dosage: 160 MG, 1X/DAY
  2. PLAVIX [Suspect]
     Dosage: UNK

REACTIONS (5)
  - OEDEMA PERIPHERAL [None]
  - CONTUSION [None]
  - INCORRECT DOSE ADMINISTERED [None]
  - NIGHT SWEATS [None]
  - NAUSEA [None]
